FAERS Safety Report 5524246-4 (Version None)
Quarter: 2007Q4

REPORT INFORMATION
  Report Type: 
  Country: None (occurrence: None)
  Receive Date: 20071121
  Receipt Date: 20071115
  Transmission Date: 20080405
  Serious: Yes (Hospitalization, Other)
  Sender: FDA-Public Use
  Company Number: US-PFIZER INC-2007091446

PATIENT
  Sex: Female
  Weight: 59 kg

DRUGS (7)
  1. DETROL LA [Suspect]
     Indication: POLLAKIURIA
  2. DETROL LA [Suspect]
     Indication: URINARY INCONTINENCE
  3. TOPROL-XL [Concomitant]
     Indication: CARDIAC DISORDER
  4. EVISTA [Concomitant]
     Indication: BONE DISORDER
  5. VERAPAMIL [Concomitant]
     Indication: BLOOD PRESSURE
  6. SIMVASTATIN [Concomitant]
     Indication: BLOOD CHOLESTEROL
  7. ALBUTEROL [Concomitant]
     Indication: ASTHMA

REACTIONS (5)
  - BLOOD PRESSURE INCREASED [None]
  - CONSTIPATION [None]
  - MYOCARDIAL INFARCTION [None]
  - NERVOUS SYSTEM SURGERY [None]
  - POLLAKIURIA [None]
